FAERS Safety Report 9237189 (Version 1)
Quarter: 2013Q2

REPORT INFORMATION
  Report Type: Spontaneous
  Country: IT (occurrence: IT)
  Receive Date: 20130417
  Receipt Date: 20130417
  Transmission Date: 20140414
  Serious: Yes (Other)
  Sender: FDA-Public Use
  Company Number: IT-ELI_LILLY_AND_COMPANY-IT201304004096

PATIENT
  Age: 53 Year
  Sex: Male
  Weight: 70 kg

DRUGS (3)
  1. GEMZAR [Suspect]
     Indication: PANCREATIC CARCINOMA
     Dosage: 1794 MG, UNK
     Route: 042
     Dates: start: 20121016
  2. PANCREX [Concomitant]
     Indication: MALABSORPTION
     Dosage: 1020 MG, UNK
     Route: 048
  3. ANTRA [Concomitant]
     Dosage: 20 MG, UNK
     Route: 048

REACTIONS (1)
  - Thrombocytosis [Recovered/Resolved]
